FAERS Safety Report 23794922 (Version 1)
Quarter: 2024Q2

REPORT INFORMATION
  Report Type: Report from Study
  Country: EG (occurrence: EG)
  Receive Date: 20240429
  Receipt Date: 20240429
  Transmission Date: 20240716
  Serious: Yes (Other)
  Sender: FDA-Public Use
  Company Number: EG-ABBVIE-5734135

PATIENT
  Age: 7 Year
  Sex: Male

DRUGS (6)
  1. HUMIRA [Suspect]
     Active Substance: ADALIMUMAB
     Indication: Uveitis
     Dosage: START DATE TEXT: LATE 2021 OR EARLY 2022
     Route: 058
  2. HUMIRA [Suspect]
     Active Substance: ADALIMUMAB
     Dosage: 20MG (HALF A SYRINGE),1 OR 1 AND A HALF YEAR LATER
     Route: 058
     Dates: start: 202009
  3. METHOTREXATE [Concomitant]
     Active Substance: METHOTREXATE
     Indication: Uveitis
     Dosage: ORAL AND INJECTION
  4. CORTISONE [Concomitant]
     Active Substance: CORTISONE
     Indication: Uveitis
     Route: 065
     Dates: start: 202311
  5. FOLIC ACID [Concomitant]
     Active Substance: FOLIC ACID
     Indication: Prophylaxis
     Dosage: 1 TABLET BEFORE METHOTREXATE AND 1 TABLET AFTER METHOTREXATE
     Route: 048
  6. VITAMIN D [Concomitant]
     Active Substance: VITAMIN D NOS
     Indication: Vitamin D deficiency

REACTIONS (11)
  - Corneal abrasion [Recovered/Resolved]
  - Overweight [Recovering/Resolving]
  - Vitamin D deficiency [Unknown]
  - Lenticular opacities [Recovering/Resolving]
  - Fatigue [Recovering/Resolving]
  - Respiratory disorder [Recovering/Resolving]
  - Growth disorder [Recovering/Resolving]
  - Heart rate increased [Recovering/Resolving]
  - Procedural pain [Unknown]
  - Visual impairment [Recovering/Resolving]
  - Weight increased [Unknown]

NARRATIVE: CASE EVENT DATE: 20210501
